FAERS Safety Report 15920305 (Version 2)
Quarter: 2019Q1

REPORT INFORMATION
  Report Type: Report from Study
  Country: US (occurrence: US)
  Receive Date: 20190205
  Receipt Date: 20190301
  Transmission Date: 20190417
  Serious: No
  Sender: FDA-Public Use
  Company Number: PHEH2019US004881

PATIENT
  Sex: Female
  Weight: 72.57 kg

DRUGS (1)
  1. COSENTYX [Suspect]
     Active Substance: SECUKINUMAB
     Indication: ANKYLOSING SPONDYLITIS
     Route: 058
     Dates: start: 201803

REACTIONS (8)
  - Nasopharyngitis [Unknown]
  - Oropharyngeal pain [Unknown]
  - Limb injury [Unknown]
  - Chest pain [Unknown]
  - Muscle injury [Unknown]
  - Viral infection [Unknown]
  - Fall [Unknown]
  - Back pain [Unknown]
